FAERS Safety Report 9771899 (Version 1)
Quarter: 2013Q4

REPORT INFORMATION
  Report Type: Report from Study
  Country: AU (occurrence: AU)
  Receive Date: 20131219
  Receipt Date: 20131219
  Transmission Date: 20140711
  Serious: Yes (Other)
  Sender: FDA-Public Use
  Company Number: PHHY2013AU148304

PATIENT
  Sex: Female

DRUGS (1)
  1. FEMARA [Suspect]
     Indication: BREAST CANCER METASTATIC
     Dosage: UNK UKN, UNK
     Route: 048

REACTIONS (3)
  - Bone marrow disorder [Unknown]
  - Breast cancer [Unknown]
  - Malignant neoplasm progression [Unknown]
